FAERS Safety Report 18075795 (Version 2)
Quarter: 2020Q3

REPORT INFORMATION
  Report Type: Other
  Country: US (occurrence: US)
  Receive Date: 20200728
  Receipt Date: 20200824
  Transmission Date: 20201103
  Serious: Yes (Death, Other)
  Sender: FDA-Public Use
  Company Number: US-ROCHE-2647652

PATIENT
  Sex: Male

DRUGS (4)
  1. HERCEPTIN [Suspect]
     Active Substance: TRASTUZUMAB
     Indication: BLADDER CANCER
     Dosage: INFUSE 704 MILLIGRAMS INTRAVENOUSLY AS A LOADING DOSE, STRENGTH:150 MG
     Route: 042
  2. PERJETA [Suspect]
     Active Substance: PERTUZUMAB
     Indication: METASTASES TO BONE
  3. HERCEPTIN [Suspect]
     Active Substance: TRASTUZUMAB
     Indication: METASTASES TO BONE
  4. PERJETA [Suspect]
     Active Substance: PERTUZUMAB
     Indication: BLADDER CANCER
     Dosage: INFUSE 840 MILLIGRAMS INTRAVENOUSLY AS A LOADING DOSE, STRENGTH 420 MG
     Route: 042

REACTIONS (3)
  - Death [Fatal]
  - Off label use [Unknown]
  - Intentional product use issue [Unknown]
